FAERS Safety Report 5410162-5 (Version None)
Quarter: 2007Q3

REPORT INFORMATION
  Report Type: 
  Country: None (occurrence: None)
  Receive Date: 20070713
  Receipt Date: 20070411
  Transmission Date: 20080115
  Serious: No
  Sender: FDA-Public Use
  Company Number: 2007SP001283

PATIENT
  Age: 83 Year
  Sex: Female
  Weight: 46.2669 kg

DRUGS (3)
  1. LUNESTA [Suspect]
     Indication: INSOMNIA
     Dosage: 1 MG; ORAL; 2 MG; ORAL; 3 MG; ORAL; 4 MG; ORAL
     Route: 048
  2. ATORVASTATIN CALCIUM [Concomitant]
  3. ESTROGENS CONJUGATED [Concomitant]

REACTIONS (3)
  - DRUG INEFFECTIVE [None]
  - DYSGEUSIA [None]
  - INSOMNIA [None]
